FAERS Safety Report 6060542-2 (Version None)
Quarter: 2009Q1

REPORT INFORMATION
  Report Type: 
  Country: None (occurrence: None)
  Receive Date: 20090202
  Receipt Date: 20090121
  Transmission Date: 20090719
  Serious: Yes (Death)
  Sender: FDA-Public Use
  Company Number: US-JNJFOC-20090105781

PATIENT
  Sex: Male
  Weight: 95.71 kg

DRUGS (4)
  1. FENTANYL-75 [Suspect]
     Indication: DRUG USE FOR UNKNOWN INDICATION
     Route: 065
  2. COCAINE [Suspect]
     Indication: DRUG USE FOR UNKNOWN INDICATION
  3. CHLORDIAZEPOXIDE [Concomitant]
     Indication: DRUG USE FOR UNKNOWN INDICATION
  4. ACETAMINOPHEN [Concomitant]
     Indication: DRUG USE FOR UNKNOWN INDICATION

REACTIONS (1)
  - DRUG TOXICITY [None]
